FAERS Safety Report 24587398 (Version 1)
Quarter: 2024Q4

REPORT INFORMATION
  Report Type: Report from Study
  Country: US (occurrence: US)
  Receive Date: 20241107
  Receipt Date: 20241107
  Transmission Date: 20250115
  Serious: Yes (Other)
  Sender: ABBVIE
  Company Number: US-ABBVIE-5985159

PATIENT
  Age: 69 Year
  Sex: Female

DRUGS (9)
  1. CREON [Suspect]
     Active Substance: PANCRELIPASE AMYLASE\PANCRELIPASE LIPASE\PANCRELIPASE PROTEASE
     Indication: Pancreatic failure
     Dosage: 2 WITH MEALS 1 WITH SNACK USUALLY TAKES ONE PROTEIN DRINK?BEFORE BED 7 A DAY NORMALLY
     Route: 048
     Dates: start: 20240403
  2. LEVOTHYROXINE [Concomitant]
     Active Substance: LEVOTHYROXINE
     Indication: Autoimmune thyroiditis
     Dosage: 50 MCG, ONES A DAY
     Dates: start: 2013
  3. FUROSEMIDE [Concomitant]
     Active Substance: FUROSEMIDE
     Indication: Diuretic therapy
     Dosage: 2 TABLETS A DAY, LASIX
     Dates: start: 1984
  4. VICTOZA [Concomitant]
     Active Substance: LIRAGLUTIDE
     Indication: Diabetes mellitus
     Dosage: ONCE A DAY SHOT
     Dates: start: 2014
  5. NEXIUM [Concomitant]
     Active Substance: ESOMEPRAZOLE MAGNESIUM
     Indication: Gastrooesophageal reflux disease
     Dosage: ONCE A DAY
     Dates: start: 2004
  6. LISINOPRIL [Concomitant]
     Active Substance: LISINOPRIL
     Indication: Hypertension
     Dosage: ONCE AT NIGHT
     Dates: start: 2009
  7. POTASSIUM CHLORIDE [Concomitant]
     Active Substance: POTASSIUM CHLORIDE
     Indication: Blood potassium decreased
     Dosage: ER, 5 TIMES PER DAY,  COULDNT SWALLOW THE BIGGER ONES SO TAKES 5 SMALLER IF NOT TAKE HEART FLUTTERS
     Dates: start: 1979
  8. ATENOLOL [Concomitant]
     Active Substance: ATENOLOL
     Indication: Heart rate irregular
     Dates: start: 1979
  9. BACTROBAN [Concomitant]
     Active Substance: BACTROBAN
     Indication: Tracheostomy
     Dosage: AS NEEDED, WHEN STOMA GETS IRRITATED
     Dates: start: 2004

REACTIONS (5)
  - Oesophageal stenosis [Unknown]
  - Off label use [Recovered/Resolved]
  - Feeding disorder [Unknown]
  - Oesophageal spasm [Recovered/Resolved]
  - Dysphagia [Unknown]

NARRATIVE: CASE EVENT DATE: 20240101
